FAERS Safety Report 9465634 (Version 1)
Quarter: 2013Q3

REPORT INFORMATION
  Report Type: Spontaneous
  Country: IN (occurrence: IN)
  Receive Date: 20130820
  Receipt Date: 20130820
  Transmission Date: 20140515
  Serious: Yes (Other)
  Sender: FDA-Public Use
  Company Number: PHHY2013IN088865

PATIENT
  Age: 13 Year
  Sex: Male

DRUGS (1)
  1. DEFEROXAMINE [Suspect]
     Indication: IRON OVERLOAD
     Dosage: 40 MG/KG, EVERY 3 TO 4 WEEKS

REACTIONS (3)
  - Hand deformity [Unknown]
  - Wrist deformity [Unknown]
  - Knee deformity [Unknown]
